FAERS Safety Report 20907682 (Version 2)
Quarter: 2022Q2

REPORT INFORMATION
  Report Type: Spontaneous
  Country: US (occurrence: US)
  Receive Date: 20220602
  Receipt Date: 20220616
  Transmission Date: 20220720
  Serious: Yes (Other)
  Sender: FDA-Public Use
  Company Number: US-TEVA-2022-US-2041257

PATIENT
  Age: 14 Year
  Sex: Male

DRUGS (56)
  1. PREDNISONE [Suspect]
     Active Substance: PREDNISONE
     Indication: B precursor type acute leukaemia
     Dosage: AS A PART OF CHILDREN^S CANCER GROUP (CCG) PROTOCOL 1961
     Route: 065
  2. PREDNISONE [Suspect]
     Active Substance: PREDNISONE
     Indication: Central nervous system leukaemia
  3. DAUNORUBICIN [Suspect]
     Active Substance: DAUNORUBICIN
     Indication: B precursor type acute leukaemia
     Dosage: AS A PART OF CHILDREN^S CANCER GROUP (CCG) PROTOCOL 1961
     Route: 065
  4. DAUNORUBICIN [Suspect]
     Active Substance: DAUNORUBICIN
     Indication: Central nervous system leukaemia
     Dosage: AS A PART OF CHILDREN^S ONCOLOGY GROUP (COG) PROTOCOL AALL02P2
     Route: 065
  5. VINCRISTINE [Suspect]
     Active Substance: VINCRISTINE
     Indication: B precursor type acute leukaemia
     Dosage: AS A PART OF CHILDREN^S CANCER GROUP (CCG) PROTOCOL 1961
     Route: 065
  6. VINCRISTINE [Suspect]
     Active Substance: VINCRISTINE
     Indication: Central nervous system leukaemia
     Dosage: AS A PART OF CHILDREN^S ONCOLOGY GROUP (COG) PROTOCOL AALL02P2
     Route: 065
  7. VINCRISTINE [Suspect]
     Active Substance: VINCRISTINE
     Dosage: AFTER BONE MARROW RELAPSE
     Route: 065
  8. DOXORUBICIN [Suspect]
     Active Substance: DOXORUBICIN
     Indication: B precursor type acute leukaemia
     Dosage: AS A PART OF CHILDREN^S CANCER GROUP (CCG) PROTOCOL 1961
     Route: 065
  9. DOXORUBICIN [Suspect]
     Active Substance: DOXORUBICIN
     Indication: Central nervous system leukaemia
     Dosage: AS A PART OF CHILDREN^S ONCOLOGY GROUP (COG) PROTOCOL AALL02P2
     Route: 065
  10. DOXORUBICIN [Suspect]
     Active Substance: DOXORUBICIN
     Dosage: AFTER LAST BONE MARROW RELAPSE
     Route: 065
  11. METHOTREXATE [Suspect]
     Active Substance: METHOTREXATE
     Indication: B precursor type acute leukaemia
     Dosage: AS A PART OF CHILDREN^S CANCER GROUP (CCG) PROTOCOL 1961
     Route: 037
  12. METHOTREXATE [Suspect]
     Active Substance: METHOTREXATE
     Indication: Central nervous system leukaemia
     Dosage: AS A PART OF CHILDREN^S CANCER GROUP (CCG) PROTOCOL 1961--ESCALATING METHOTREXATE
     Route: 065
  13. METHOTREXATE [Suspect]
     Active Substance: METHOTREXATE
     Dosage: AS A PART OF CHILDREN^S ONCOLOGY GROUP (COG) PROTOCOL AALL02P2
     Route: 037
  14. METHOTREXATE [Suspect]
     Active Substance: METHOTREXATE
     Dosage: AS A PART OF CHILDREN^S ONCOLOGY GROUP (COG) PROTOCOL AALL02P2
     Route: 065
  15. METHOTREXATE [Suspect]
     Active Substance: METHOTREXATE
     Dosage: ESCALATING METHOTREXATE WITH CRISANTASPASE
     Route: 065
  16. METHOTREXATE [Suspect]
     Active Substance: METHOTREXATE
     Dosage: MULTIPLE DOSES WITH CYTARABINE
     Route: 050
  17. METHOTREXATE [Suspect]
     Active Substance: METHOTREXATE
     Dosage: SINGLE DOSE
     Route: 050
  18. DEXAMETHASONE [Suspect]
     Active Substance: DEXAMETHASONE
     Indication: B precursor type acute leukaemia
     Dosage: AS A PART OF CHILDREN^S CANCER GROUP (CCG) PROTOCOL 1961
     Route: 065
  19. DEXAMETHASONE [Suspect]
     Active Substance: DEXAMETHASONE
     Indication: Central nervous system leukaemia
     Dosage: AS A PART OF CHILDREN^S ONCOLOGY GROUP (COG) PROTOCOL AALL02P2
     Route: 065
  20. DEXAMETHASONE [Suspect]
     Active Substance: DEXAMETHASONE
     Dosage: AFTER CNS RELAPSE WITH LEPTOMENINGEAL INVOLVEMENT
     Route: 065
  21. DEXAMETHASONE [Suspect]
     Active Substance: DEXAMETHASONE
     Dosage: AFTER LAST BONE MARROW RELAPSE
     Route: 065
  22. ETOPOSIDE [Suspect]
     Active Substance: ETOPOSIDE
     Indication: B precursor type acute leukaemia
     Dosage: AS A PART OF CHILDREN^S ONCOLOGY GROUP (COG) PROTOCOL AALL02P2
     Route: 065
  23. ETOPOSIDE [Suspect]
     Active Substance: ETOPOSIDE
     Indication: Central nervous system leukaemia
     Dosage: AFTER SECOND RELAPSE IN BONE MARROW AND CNS
     Route: 065
  24. ETOPOSIDE [Suspect]
     Active Substance: ETOPOSIDE
     Dosage: AFTER CNS RELAPSE WITH LEPTOMENINGEAL INVOLVEMENT
     Route: 065
  25. IFOSFAMIDE [Suspect]
     Active Substance: IFOSFAMIDE
     Indication: B precursor type acute leukaemia
     Dosage: AFTER SECOND RELAPSE IN BONE MARROW AND CNS
     Route: 065
  26. IFOSFAMIDE [Suspect]
     Active Substance: IFOSFAMIDE
     Indication: Central nervous system leukaemia
  27. BORTEZOMIB [Suspect]
     Active Substance: BORTEZOMIB
     Indication: B precursor type acute leukaemia
     Dosage: AFTER FINAL BONE MARROW RELAPSE
     Route: 065
  28. BORTEZOMIB [Suspect]
     Active Substance: BORTEZOMIB
     Indication: Central nervous system leukaemia
  29. CYCLOPHOSPHAMIDE [Suspect]
     Active Substance: CYCLOPHOSPHAMIDE
     Indication: B precursor type acute leukaemia
     Dosage: AS A PART OF CHILDREN^S CANCER GROUP (CCG) PROTOCOL 1961
     Route: 065
  30. CYCLOPHOSPHAMIDE [Suspect]
     Active Substance: CYCLOPHOSPHAMIDE
     Indication: Central nervous system leukaemia
     Dosage: AS A PART OF CHILDREN^S ONCOLOGY GROUP (COG) PROTOCOL AALL02P2
     Route: 065
  31. CYCLOPHOSPHAMIDE [Suspect]
     Active Substance: CYCLOPHOSPHAMIDE
     Dosage: AFTER CNS RELAPSE WITH LEPTOMENINGEAL INVOLVEMENT
     Route: 065
  32. CYTARABINE [Suspect]
     Active Substance: CYTARABINE
     Indication: B precursor type acute leukaemia
     Dosage: AS A PART OF CHILDREN^S CANCER GROUP (CCG) PROTOCOL 1961
     Route: 065
  33. CYTARABINE [Suspect]
     Active Substance: CYTARABINE
     Indication: Central nervous system leukaemia
     Dosage: AS A PART OF CHILDREN^S ONCOLOGY GROUP (COG) PROTOCOL AALL02P2
     Route: 065
  34. CYTARABINE [Suspect]
     Active Substance: CYTARABINE
     Dosage: AS A PART OF CHILDREN^S ONCOLOGY GROUP (COG) PROTOCOL AALL02P2- INTRATHECAL TRIPLE THERAPY
     Route: 037
  35. CYTARABINE [Suspect]
     Active Substance: CYTARABINE
     Indication: B precursor type acute leukaemia
     Dosage: AFTER SECOND RELAPSE IN HIS BONE MARROW AND CNS
     Route: 065
  36. CYTARABINE [Suspect]
     Active Substance: CYTARABINE
     Indication: Central nervous system leukaemia
     Dosage: MULTIPLE DOSES
     Route: 050
  37. THIOGUANINE [Suspect]
     Active Substance: THIOGUANINE
     Indication: B precursor type acute leukaemia
     Dosage: AS A PART OF CHILDREN^S CANCER GROUP (CCG) PROTOCOL 1961
     Route: 065
  38. THIOGUANINE [Suspect]
     Active Substance: THIOGUANINE
     Indication: Central nervous system leukaemia
  39. MERCAPTOPURINE [Suspect]
     Active Substance: MERCAPTOPURINE
     Indication: B precursor type acute leukaemia
     Dosage: AS A PART OF CHILDREN^S CANCER GROUP (CCG) PROTOCOL 1961
     Route: 065
  40. MERCAPTOPURINE [Suspect]
     Active Substance: MERCAPTOPURINE
     Indication: Central nervous system leukaemia
     Dosage: AS A PART OF CHILDREN^S ONCOLOGY GROUP (COG) PROTOCOL AALL02P2
     Route: 065
  41. HYDROCORTISONE [Suspect]
     Active Substance: HYDROCORTISONE
     Indication: B precursor type acute leukaemia
     Dosage: AS A PART OF CHILDREN^S ONCOLOGY GROUP (COG) PROTOCOL AALL02P2- INTRATHECAL TRIPLE THERAPY
     Route: 037
  42. HYDROCORTISONE [Suspect]
     Active Substance: HYDROCORTISONE
     Indication: Central nervous system leukaemia
     Dosage: ALONG WITH RITUXIMAB
     Route: 050
  43. ASPARAGINASE ERWINIA CHRYSANTHEMI [Suspect]
     Active Substance: ASPARAGINASE ERWINIA CHRYSANTHEMI
     Indication: B precursor type acute leukaemia
     Dosage: AS A PART OF CHILDREN^S ONCOLOGY GROUP (COG) PROTOCOL AALL02P2
     Route: 065
  44. ASPARAGINASE ERWINIA CHRYSANTHEMI [Suspect]
     Active Substance: ASPARAGINASE ERWINIA CHRYSANTHEMI
     Indication: Central nervous system leukaemia
     Dosage: AFTER SECOND RELAPSE IN BONE MARROW AND CNS
     Route: 065
  45. TEMOZOLOMIDE [Suspect]
     Active Substance: TEMOZOLOMIDE
     Indication: B precursor type acute leukaemia
     Dosage: AFTER DETECTION OF CRANIAL NERVE INVOLVEMENT
     Route: 065
  46. TEMOZOLOMIDE [Suspect]
     Active Substance: TEMOZOLOMIDE
     Indication: Central nervous system leukaemia
  47. TOPOTECAN [Suspect]
     Active Substance: TOPOTECAN HYDROCHLORIDE
     Indication: B precursor type acute leukaemia
     Dosage: MULTIPLE DOSES
     Route: 050
  48. TOPOTECAN [Suspect]
     Active Substance: TOPOTECAN HYDROCHLORIDE
     Indication: Central nervous system leukaemia
  49. THALIDOMIDE [Suspect]
     Active Substance: THALIDOMIDE
     Indication: B precursor type acute leukaemia
     Dosage: AFTER CNS RELAPSE WITH LEPTOMENINGEAL INVOLVEMENT
     Route: 065
  50. THALIDOMIDE [Suspect]
     Active Substance: THALIDOMIDE
     Indication: Central nervous system leukaemia
  51. RITUXIMAB [Suspect]
     Active Substance: RITUXIMAB
     Indication: B precursor type acute leukaemia
     Dosage: MULTIPLE DOSES
     Route: 050
  52. RITUXIMAB [Suspect]
     Active Substance: RITUXIMAB
     Indication: Central nervous system leukaemia
     Route: 050
  53. EPRATUZUMAB [Suspect]
     Active Substance: EPRATUZUMAB
     Indication: B precursor type acute leukaemia
     Route: 050
  54. EPRATUZUMAB [Suspect]
     Active Substance: EPRATUZUMAB
     Indication: Central nervous system leukaemia
  55. PEGASPARGASE [Suspect]
     Active Substance: PEGASPARGASE
     Indication: B precursor type acute leukaemia
     Dosage: AS A PART OF CHILDREN^S CANCER GROUP (CCG) PROTOCOL 1961
     Route: 065
  56. PEGASPARGASE [Suspect]
     Active Substance: PEGASPARGASE
     Indication: Central nervous system leukaemia

REACTIONS (4)
  - Drug hypersensitivity [Unknown]
  - Seizure [Unknown]
  - Treatment failure [Unknown]
  - Off label use [Unknown]
